FAERS Safety Report 6271971-6 (Version None)
Quarter: 2009Q3

REPORT INFORMATION
  Report Type: 
  Country: None (occurrence: None)
  Receive Date: 20090715
  Receipt Date: 20090702
  Transmission Date: 20100115
  Serious: Yes (Death)
  Sender: FDA-Public Use
  Company Number: 2008AL012367

PATIENT
  Age: 67 Year
  Sex: Male

DRUGS (17)
  1. DIGOXIN [Suspect]
     Dosage: 0.25MG,  PO
     Route: 048
     Dates: start: 20071001, end: 20081105
  2. ISOSORBIDE DINITRATE [Concomitant]
  3. PLAVIX [Concomitant]
  4. FUROSEMIDE [Concomitant]
  5. POTASSIUM CHLORIDE [Concomitant]
  6. NITROGLYCERIN [Concomitant]
  7. AVAPRO [Concomitant]
  8. ALLOPURINOL [Concomitant]
  9. WARFARIN SODIUM [Concomitant]
  10. METOPROLOL SUCCINATE [Concomitant]
  11. SIMVASTATIN [Concomitant]
  12. FERROUS SULFATE TAB [Concomitant]
  13. METFORMIN HCL [Concomitant]
  14. NEXIUM [Concomitant]
  15. RENAL CAPSULE [Concomitant]
  16. DIATX [Concomitant]
  17. LEVEMIR [Concomitant]

REACTIONS (7)
  - ANXIETY [None]
  - ARTERIOSCLEROSIS [None]
  - DIABETES MELLITUS [None]
  - ECONOMIC PROBLEM [None]
  - MULTIPLE INJURIES [None]
  - PAIN [None]
  - RENAL DISORDER [None]
